FAERS Safety Report 8098354-0 (Version None)
Quarter: 2012Q1

REPORT INFORMATION
  Report Type: 
  Country: None (occurrence: None)
  Receive Date: 20120131
  Receipt Date: 20120125
  Transmission Date: 20120608
  Serious: Yes (Other)
  Sender: FDA-Public Use
  Company Number: US-SANOFI-AVENTIS-2012SA006051

PATIENT

DRUGS (3)
  1. BEVACIZUMAB [Suspect]
     Indication: COLORECTAL CANCER
     Dosage: ON DAY 1
     Route: 065
  2. OXALIPLATIN [Suspect]
     Indication: COLORECTAL CANCER
     Route: 065
  3. CAPECITABINE [Suspect]
     Indication: COLORECTAL CANCER
     Dosage: IN 2 DIVIDED DOSES ON DAY 1-7
     Route: 048

REACTIONS (1)
  - INTESTINAL PERFORATION [None]
